FAERS Safety Report 5386394-1 (Version None)
Quarter: 2007Q3

REPORT INFORMATION
  Report Type: 
  Country: None (occurrence: None)
  Receive Date: 20070713
  Receipt Date: 20070703
  Transmission Date: 20080115
  Serious: Yes (Death, Hospitalization, Disabling)
  Sender: FDA-Public Use
  Company Number: IT-AMGEN-UK229968

PATIENT
  Sex: Female

DRUGS (6)
  1. NEULASTA [Suspect]
     Indication: ACUTE MYELOID LEUKAEMIA
     Route: 058
     Dates: start: 20070405, end: 20070604
  2. RABEPRAZOLE SODIUM [Concomitant]
     Route: 048
     Dates: start: 20070227
  3. ATENOLOL [Concomitant]
     Route: 048
     Dates: end: 20070608
  4. CANDESARTAN [Concomitant]
     Route: 048
     Dates: start: 20070401, end: 20070608
  5. ASCORBIC ACID [Concomitant]
  6. ARSENIC TRIOXIDE [Concomitant]

REACTIONS (10)
  - ATRIAL FIBRILLATION [None]
  - COMA [None]
  - DYSPNOEA [None]
  - HEPATOSPLENOMEGALY [None]
  - LUNG INFILTRATION [None]
  - LYMPHADENOPATHY [None]
  - PLEURAL EFFUSION [None]
  - PYREXIA [None]
  - RESPIRATORY FAILURE [None]
  - WHITE BLOOD CELL COUNT INCREASED [None]
